FAERS Safety Report 8398727-2 (Version None)
Quarter: 2012Q2

REPORT INFORMATION
  Report Type: 
  Country: None (occurrence: None)
  Receive Date: 20120531
  Receipt Date: 20120524
  Transmission Date: 20120825
  Serious: Yes (Death, Life-Threatening)
  Sender: FDA-Public Use
  Company Number: PHHY2012FR039725

PATIENT
  Sex: Male
  Weight: 60 kg

DRUGS (3)
  1. PREDNISOLONE [Concomitant]
     Indication: GENERAL PHYSICAL HEALTH DETERIORATION
     Dosage: 40 MG, QD
     Dates: start: 20111101
  2. OXYNORM [Concomitant]
     Indication: BONE PAIN
     Dosage: 40 MG, QD
     Dates: start: 20120301
  3. EVEROLIMUS [Suspect]
     Indication: RENAL CANCER METASTATIC
     Dosage: 10 MG, QD
     Route: 048
     Dates: start: 20111214, end: 20120120

REACTIONS (7)
  - CONCOMITANT DISEASE AGGRAVATED [None]
  - NEOPLASM PROGRESSION [None]
  - WEIGHT DECREASED [None]
  - DECREASED APPETITE [None]
  - NEOPLASM MALIGNANT [None]
  - ANAEMIA [None]
  - GENERAL PHYSICAL HEALTH DETERIORATION [None]
